FAERS Safety Report 24857837 (Version 1)
Quarter: 2025Q1

REPORT INFORMATION
  Report Type: Spontaneous
  Country: US (occurrence: US)
  Receive Date: 20250117
  Receipt Date: 20250117
  Transmission Date: 20250409
  Serious: Yes (Other)
  Sender: SANDOZ
  Company Number: US-002147023-NVSC2023US190073

PATIENT
  Sex: Female

DRUGS (2)
  1. FULVESTRANT [Suspect]
     Active Substance: FULVESTRANT
     Indication: Product used for unknown indication
     Route: 065
  2. KISQALI [Suspect]
     Active Substance: RIBOCICLIB
     Indication: Product used for unknown indication
     Route: 048

REACTIONS (14)
  - Metastatic neoplasm [Recovering/Resolving]
  - Cancer in remission [Unknown]
  - Eye pain [Unknown]
  - Photophobia [Unknown]
  - Photosensitivity reaction [Unknown]
  - Fatigue [Unknown]
  - Back pain [Unknown]
  - Rash [Unknown]
  - Cough [Unknown]
  - Asthenia [Unknown]
  - Dysgeusia [Unknown]
  - Pruritus [Unknown]
  - Diarrhoea [Unknown]
  - Product use issue [Unknown]
